FAERS Safety Report 7464019-9 (Version None)
Quarter: 2011Q2

REPORT INFORMATION
  Report Type: 
  Country: None (occurrence: None)
  Receive Date: 20110506
  Receipt Date: 20110425
  Transmission Date: 20111010
  Serious: No
  Sender: FDA-Public Use
  Company Number: US-B.I. PHARMACEUTICALS,INC./RIDGEFIELD-2011-BP-11661BP

PATIENT
  Sex: Female

DRUGS (8)
  1. PRILOSEC [Concomitant]
  2. MAXALT [Concomitant]
     Indication: MIGRAINE
  3. CLARITIN [Concomitant]
     Indication: HYPERSENSITIVITY
  4. SINGULAIR [Concomitant]
     Indication: HYPERSENSITIVITY
  5. MOBIC [Suspect]
     Indication: PAIN
     Dosage: 15 MG
     Route: 048
     Dates: start: 20110201
  6. ACETAMINOPHEN [Concomitant]
     Indication: PAIN
  7. ADVAIR DISKUS 100/50 [Concomitant]
     Indication: ASTHMA
  8. SINGULAIR [Concomitant]
     Indication: ASTHMA

REACTIONS (1)
  - BLEPHAROSPASM [None]
